FAERS Safety Report 9075853 (Version 1)
Quarter: 2013Q1

REPORT INFORMATION
  Report Type: Report from Study
  Country: JP (occurrence: JP)
  Receive Date: 20130201
  Receipt Date: 20130201
  Transmission Date: 20140127
  Serious: Yes (Other)
  Sender: FDA-Public Use
  Company Number: JP-GILEAD-2013-0068655

PATIENT
  Age: 60 None
  Sex: Male

DRUGS (19)
  1. FUROSEMIDE [Concomitant]
     Indication: CARDIAC FAILURE
     Route: 065
  2. SLOW-K [Concomitant]
     Indication: HYPOKALAEMIA
     Route: 048
  3. SELBEX [Concomitant]
     Indication: GASTRIC ULCER
     Route: 048
  4. BACTRAMIN [Concomitant]
     Indication: ANTIFUNGAL PROPHYLAXIS
     Route: 065
  5. SULTANOL [Concomitant]
     Indication: ASTHMA
     Route: 055
  6. MUCODYNE [Concomitant]
     Indication: ASTHMA
     Route: 048
  7. CALFINA [Concomitant]
     Indication: OSTEOPOROSIS PROPHYLAXIS
     Route: 048
  8. GLAKAY [Concomitant]
     Indication: OSTEOPOROSIS PROPHYLAXIS
     Route: 048
  9. ALDACTONE A [Concomitant]
     Indication: CARDIAC FAILURE
     Route: 048
  10. TRACLEER                           /01587701/ [Concomitant]
     Indication: PULMONARY HYPERTENSION
     Route: 048
     Dates: end: 20101022
  11. AMBRISENTAN [Suspect]
     Indication: INTERSTITIAL LUNG DISEASE
     Dosage: 10 MG, QD
     Route: 048
     Dates: end: 20101126
  12. AMBRISENTAN [Suspect]
     Dosage: 5 MG, QD
     Route: 048
     Dates: start: 20101113
  13. AMBRISENTAN [Suspect]
     Dosage: 2.5 MG, QD
     Route: 048
     Dates: start: 20101022, end: 20101112
  14. REVATIO [Concomitant]
     Indication: PULMONARY HYPERTENSION
     Route: 048
  15. BERASUS [Concomitant]
     Indication: PULMONARY HYPERTENSION
     Route: 048
  16. PREDNISOLONE [Concomitant]
     Indication: PULMONARY FIBROSIS
     Route: 048
  17. DIART [Concomitant]
     Indication: CARDIAC FAILURE
     Route: 048
  18. DIAMOX                             /00016901/ [Concomitant]
     Indication: CARDIAC FAILURE
     Route: 065
  19. HERBESSER R [Concomitant]
     Indication: ANGINA PECTORIS
     Route: 065

REACTIONS (1)
  - Pulmonary congestion [Recovered/Resolved]
